FAERS Safety Report 17762476 (Version 2)
Quarter: 2020Q2

REPORT INFORMATION
  Report Type: Spontaneous
  Country: CN (occurrence: CN)
  Receive Date: 20200508
  Receipt Date: 20200519
  Transmission Date: 20200714
  Serious: Yes (Other)
  Sender: FDA-Public Use
  Company Number: CN-GLAXOSMITHKLINE-CN2020074553

PATIENT
  Age: 78 Year
  Sex: Female

DRUGS (1)
  1. VOLTAREN EMULGEL [Suspect]
     Active Substance: DICLOFENAC DIETHYLAMINE
     Indication: TENOSYNOVITIS
     Dosage: UNK UNK, QD, 20 G
     Route: 061

REACTIONS (4)
  - Drug dependence [Unknown]
  - Intentional product use issue [Unknown]
  - Product use issue [Unknown]
  - Angiopathy [Recovering/Resolving]
